FAERS Safety Report 24348459 (Version 1)
Quarter: 2024Q3

REPORT INFORMATION
  Report Type: Spontaneous
  Country: US (occurrence: US)
  Receive Date: 20240923
  Receipt Date: 20240923
  Transmission Date: 20241016
  Serious: No
  Sender: AUROBINDO
  Company Number: US-AUROBINDO-AUR-APL-2023-066701

PATIENT
  Age: 70 Year
  Sex: Female
  Weight: 90.7 kg

DRUGS (1)
  1. TAMOXIFEN CITRATE [Suspect]
     Active Substance: TAMOXIFEN CITRATE
     Indication: Breast cancer
     Dosage: UNK UNK, ONCE A DAY
     Route: 065
     Dates: start: 20230626, end: 202307

REACTIONS (5)
  - Dry skin [Not Recovered/Not Resolved]
  - Dry mouth [Recovered/Resolved]
  - Affect lability [Recovered/Resolved]
  - Crying [Recovered/Resolved]
  - Skin disorder [Recovered/Resolved]
